FAERS Safety Report 5988789-1 (Version None)
Quarter: 2008Q4

REPORT INFORMATION
  Report Type: 
  Country: None (occurrence: None)
  Receive Date: 20081204
  Receipt Date: 20081106
  Transmission Date: 20090506
  Serious: Yes (Hospitalization)
  Sender: FDA-Public Use
  Company Number: US025102

PATIENT
  Age: 67 Year
  Sex: Male

DRUGS (2)
  1. BENDAMUSTINE [Suspect]
     Indication: NON-HODGKIN'S LYMPHOMA
     Dosage: 120 MG/KG FIRST THRU FOURTH CYCLE QD INTRAVENOUS
     Route: 042
     Dates: start: 20080123, end: 20080328
  2. BANDAMUSTINE [Suspect]
     Indication: NON-HODGKIN'S LYMPHOMA
     Dosage: 90 MG/KG FIFTH AND SIXTH CYCLE QD INTRAVENOUS
     Route: 042
     Dates: start: 20080508, end: 20080530

REACTIONS (4)
  - ANAEMIA HAEMOLYTIC AUTOIMMUNE [None]
  - INFECTION [None]
  - PYREXIA [None]
  - VIRAL INFECTION [None]
